FAERS Safety Report 21006632 (Version 1)
Quarter: 2022Q2

REPORT INFORMATION
  Report Type: Spontaneous
  Country: US (occurrence: US)
  Receive Date: 20220625
  Receipt Date: 20220625
  Transmission Date: 20220721
  Serious: No
  Sender: FDA-Public Use
  Company Number: US-LEUCADIA PHARMACEUTICALS-2022LEU000187

PATIENT

DRUGS (24)
  1. DIHYDROERGOTAMINE MESYLATE [Suspect]
     Active Substance: DIHYDROERGOTAMINE MESYLATE
     Indication: Migraine
     Dosage: UNK
  2. RIMEGEPANT SULFATE [Suspect]
     Active Substance: RIMEGEPANT SULFATE
     Indication: Migraine prophylaxis
     Dosage: 1 WHITE ODT 75 MILLIGRAM, QOD
     Route: 048
     Dates: start: 20220401
  3. TOPIRAMATE [Suspect]
     Active Substance: TOPIRAMATE
     Indication: Migraine
     Dosage: UNK
  4. AIMOVIG [Suspect]
     Active Substance: ERENUMAB-AOOE
     Indication: Migraine
     Dosage: UNK
  5. GALCANEZUMAB [Suspect]
     Active Substance: GALCANEZUMAB
     Indication: Migraine
     Dosage: UNK
  6. MAGNESIUM [Suspect]
     Active Substance: MAGNESIUM
     Indication: Migraine
     Dosage: UNK
  7. AMITRIPTYLINE [Suspect]
     Active Substance: AMITRIPTYLINE
     Indication: Migraine
     Dosage: UNK
  8. OMEPRAZOLE [Concomitant]
     Active Substance: OMEPRAZOLE
     Indication: Product used for unknown indication
     Dosage: UNK
  9. LUTEIN ESSENCE [Concomitant]
     Indication: Product used for unknown indication
     Dosage: UNK
  10. XANTHINE [Concomitant]
     Active Substance: XANTHINE
     Indication: Product used for unknown indication
     Dosage: UNK
  11. FISH OIL [Concomitant]
     Active Substance: FISH OIL
     Indication: Product used for unknown indication
     Dosage: 1200 MILLIGRAM
  12. CARNITINE                          /00878601/ [Concomitant]
     Indication: Product used for unknown indication
     Dosage: 855 MILLIGRAM
  13. PROBIOTIC COMPLEX [Concomitant]
     Indication: Product used for unknown indication
     Dosage: UNK
  14. LOVASTATIN [Concomitant]
     Active Substance: LOVASTATIN
     Indication: Product used for unknown indication
     Dosage: UNK
  15. COENZYME Q10 [Concomitant]
     Active Substance: DIETARY SUPPLEMENT\UBIDECARENONE
     Indication: Product used for unknown indication
     Dosage: UNK
  16. PROPRANOLOL [Concomitant]
     Active Substance: PROPRANOLOL HYDROCHLORIDE
     Indication: Product used for unknown indication
     Dosage: UNK
  17. VITAMIN B2                         /00154901/ [Concomitant]
     Indication: Product used for unknown indication
     Dosage: UNK
  18. TAMSULOSIN [Concomitant]
     Active Substance: TAMSULOSIN
     Indication: Product used for unknown indication
     Dosage: UNK
  19. ZONISAMIDE [Concomitant]
     Active Substance: ZONISAMIDE
     Indication: Product used for unknown indication
     Dosage: UNK
  20. VITAMIN B12 [Concomitant]
     Active Substance: CYANOCOBALAMIN
     Indication: Product used for unknown indication
     Dosage: UNK
  21. CODEINE [Concomitant]
     Active Substance: CODEINE
     Indication: Product used for unknown indication
     Dosage: UNK
  22. ADVIL                              /00109201/ [Concomitant]
     Indication: Product used for unknown indication
     Dosage: UNK
  23. ADVIL PM                           /05810501/ [Concomitant]
     Indication: Product used for unknown indication
     Dosage: UNK
  24. MYRBETRIQ [Concomitant]
     Active Substance: MIRABEGRON
     Indication: Product used for unknown indication

REACTIONS (4)
  - Abdominal discomfort [Not Recovered/Not Resolved]
  - Vomiting [Not Recovered/Not Resolved]
  - Nausea [Not Recovered/Not Resolved]
  - Drug ineffective [Unknown]

NARRATIVE: CASE EVENT DATE: 20220401
